FAERS Safety Report 26138519 (Version 1)
Quarter: 2025Q4

REPORT INFORMATION
  Report Type: Spontaneous
  Country: IN (occurrence: IN)
  Receive Date: 20251210
  Receipt Date: 20251210
  Transmission Date: 20260117
  Serious: Yes (Life-Threatening, Hospitalization)
  Sender: MACLEODS
  Company Number: IN-MACLEODS PHARMA-MAC2025056908

PATIENT

DRUGS (6)
  1. TICAGRELOR [Suspect]
     Active Substance: TICAGRELOR
     Indication: Antiplatelet therapy
     Dosage: LOADING DOSES
     Route: 065
  2. TICAGRELOR [Suspect]
     Active Substance: TICAGRELOR
     Dosage: LOADING DOSES
     Route: 065
  3. ASPIRIN [Concomitant]
     Active Substance: ASPIRIN
     Dosage: LOADING DOSES
     Route: 065
  4. ASPIRIN [Concomitant]
     Active Substance: ASPIRIN
     Route: 065
  5. ATORVASTATIN [Concomitant]
     Active Substance: ATORVASTATIN
     Indication: Product used for unknown indication
     Route: 065
  6. RAMIPRIL [Concomitant]
     Active Substance: RAMIPRIL
     Indication: Product used for unknown indication
     Route: 065

REACTIONS (1)
  - Atrioventricular block complete [Recovered/Resolved]
